FAERS Safety Report 13724631 (Version 2)
Quarter: 2017Q3

REPORT INFORMATION
  Report Type: Spontaneous
  Country: US (occurrence: US)
  Receive Date: 20170706
  Receipt Date: 20170824
  Transmission Date: 20171127
  Serious: Yes (Other)
  Sender: FDA-Public Use
  Company Number: US-JNJFOC-20170627037

PATIENT
  Sex: Male

DRUGS (1)
  1. XARELTO [Suspect]
     Active Substance: RIVAROXABAN
     Indication: PRODUCT USED FOR UNKNOWN INDICATION
     Route: 048

REACTIONS (8)
  - Arrhythmia [Unknown]
  - Facial pain [Unknown]
  - Thinking abnormal [Unknown]
  - Confusional state [Unknown]
  - Dizziness [Unknown]
  - Gastrointestinal sounds abnormal [Unknown]
  - Haemorrhage [Unknown]
  - Fall [Unknown]
